FAERS Safety Report 6276169-3 (Version None)
Quarter: 2009Q3

REPORT INFORMATION
  Report Type: 
  Country: None (occurrence: None)
  Receive Date: 20090715
  Receipt Date: 20090715
  Transmission Date: 20100115
  Serious: Yes (Life-Threatening, Hospitalization)
  Sender: FDA-Public Use
  Company Number: None

PATIENT

DRUGS (3)
  1. BYETTA [Suspect]
     Indication: TYPE 2 DIABETES MELLITUS
     Dosage: MORNING/NIGHT ONCE A DAY 2 TIME DAY
     Dates: start: 20080701
  2. LANTUS [Suspect]
     Indication: TYPE 2 DIABETES MELLITUS
     Dosage: LANTUS NIGHT TIME ONCE A DAY
     Dates: start: 20080701
  3. NOVOLOG [Suspect]
     Indication: TYPE 2 DIABETES MELLITUS
     Dosage: ON SLIDE SCALE 6 TO 8 TIM DAY
     Dates: start: 20080701

REACTIONS (4)
  - INCORRECT STORAGE OF DRUG [None]
  - MALAISE [None]
  - PRODUCT OUTER PACKAGING ISSUE [None]
  - PRODUCT QUALITY ISSUE [None]
